FAERS Safety Report 7125976-3 (Version None)
Quarter: 2010Q4

REPORT INFORMATION
  Report Type: 
  Country: None (occurrence: None)
  Receive Date: 20101129
  Receipt Date: 20101119
  Transmission Date: 20110411
  Serious: Yes (Other)
  Sender: FDA-Public Use
  Company Number: US-PFIZER INC-2010137665

PATIENT
  Sex: Male
  Weight: 92 kg

DRUGS (1)
  1. LIPITOR [Suspect]
     Indication: HYPERLIPIDAEMIA
     Dosage: 20 MG, DAILY
     Route: 048
     Dates: start: 20050201

REACTIONS (2)
  - ANTIBODY TEST ABNORMAL [None]
  - BLOOD THYROID STIMULATING HORMONE INCREASED [None]
